FAERS Safety Report 23227473 (Version 1)
Quarter: 2023Q4

REPORT INFORMATION
  Report Type: Spontaneous
  Country: US (occurrence: US)
  Receive Date: 20231124
  Receipt Date: 20231124
  Transmission Date: 20240110
  Serious: Yes (Hospitalization)
  Sender: FDA-Public Use
  Company Number: US-ALKERMES INC.-ALK-2023-004402

PATIENT
  Age: 43 Year
  Sex: Male
  Weight: 77.551 kg

DRUGS (6)
  1. VIVITROL [Suspect]
     Active Substance: NALTREXONE
     Indication: Alcoholism
     Dosage: 380 MILLIGRAM, QMO
     Route: 030
     Dates: start: 20231102
  2. HYDROCODONE [Suspect]
     Active Substance: HYDROCODONE
     Indication: Injection site pain
     Dosage: UNK, AS TREATMENT
     Route: 065
     Dates: start: 202311
  3. HYDROCODONE [Suspect]
     Active Substance: HYDROCODONE
     Indication: Injection site induration
  4. HYDROCODONE [Suspect]
     Active Substance: HYDROCODONE
     Indication: Injection site warmth
  5. HYDROCODONE [Suspect]
     Active Substance: HYDROCODONE
     Indication: Injection site swelling
  6. HYDROCODONE [Suspect]
     Active Substance: HYDROCODONE
     Indication: Injection site abscess

REACTIONS (6)
  - Injection site pustule [Not Recovered/Not Resolved]
  - Mobility decreased [Not Recovered/Not Resolved]
  - Contraindicated product administered [Unknown]
  - Injection site pain [Not Recovered/Not Resolved]
  - Product administered at inappropriate site [Recovered/Resolved]
  - Wrong technique in product usage process [Recovered/Resolved]

NARRATIVE: CASE EVENT DATE: 20231101
